FAERS Safety Report 8447325-0 (Version None)
Quarter: 2012Q2

REPORT INFORMATION
  Report Type: 
  Country: None (occurrence: None)
  Receive Date: 20120619
  Receipt Date: 20120613
  Transmission Date: 20120825
  Serious: Yes (Other)
  Sender: FDA-Public Use
  Company Number: PHHY2011CA41360

PATIENT
  Sex: Female

DRUGS (6)
  1. ZOLEDRONOC ACID [Suspect]
     Indication: OSTEOPOROSIS
     Dosage: UNK UKN, UNK
     Route: 042
     Dates: start: 20090727
  2. ZOLEDRONOC ACID [Suspect]
     Dosage: UNK UKN, UNK
     Route: 042
     Dates: start: 20110815
  3. ZOLEDRONOC ACID [Suspect]
     Dosage: UNK UKN, UNK
     Route: 042
     Dates: start: 20120606
  4. ZOLEDRONOC ACID [Suspect]
     Dosage: UNK UKN, UNK
     Route: 042
     Dates: start: 20100728
  5. LAMISIL [Concomitant]
     Indication: ONYCHOMYCOSIS
     Dosage: 250 UKN, UNK
  6. NEXIUM [Concomitant]
     Dosage: UNK UG/ML, PRN

REACTIONS (4)
  - BLOOD CREATININE DECREASED [None]
  - HERPES ZOSTER [None]
  - RASH [None]
  - PAIN [None]
